FAERS Safety Report 5085128-8 (Version None)
Quarter: 2006Q3

REPORT INFORMATION
  Report Type: 
  Country: None (occurrence: None)
  Receive Date: 20060822
  Receipt Date: 20060607
  Transmission Date: 20061208
  Serious: Yes (Disabling, Other)
  Sender: FDA-Public Use
  Company Number: PHFR2006GB01932

PATIENT
  Age: 72 Year
  Sex: Male

DRUGS (11)
  1. ARIPIPRAZOLE [Suspect]
     Dosage: 5 MG
     Route: 065
  2. CLONAZEPAM [Concomitant]
     Indication: RESTLESS LEGS SYNDROME
     Dosage: 0.5 MG
     Route: 048
     Dates: start: 20060614
  3. ACETAMINOPHEN [Concomitant]
     Indication: PAIN
     Dosage: 500 MG, BID
     Route: 048
  4. ESOMEPRAZOLE MAGNESIUM [Concomitant]
     Indication: GASTRITIS
     Dosage: 40MG/DAY
     Route: 048
     Dates: start: 20060530
  5. DOMPERIDONE [Concomitant]
     Indication: GASTRITIS
     Dosage: 10 MG, BID
     Route: 048
     Dates: start: 20060614
  6. ASPIRIN [Concomitant]
     Indication: CARDIAC DISORDER
     Dosage: 75 MG
     Route: 048
     Dates: start: 20060530
  7. ATORVASTATIN CALCIUM [Concomitant]
     Dosage: 40 MG
     Route: 048
  8. FUROSEMIDE [Concomitant]
     Indication: BLOOD PRESSURE
     Dosage: 80 MG
     Route: 048
     Dates: start: 20060530
  9. GLICLAZIDE [Concomitant]
     Indication: DIABETES MELLITUS
     Dosage: 80 MG
     Route: 048
  10. PERINDOPRIL ERUMINE [Concomitant]
     Indication: BLOOD PRESSURE
     Route: 048
  11. CLOZARIL [Suspect]
     Indication: SCHIZOPHRENIA
     Dosage: 350 MG
     Route: 048
     Dates: start: 20030101

REACTIONS (9)
  - DIABETES MELLITUS [None]
  - GASTRITIS [None]
  - HAEMOGLOBIN DECREASED [None]
  - MYELODYSPLASTIC SYNDROME [None]
  - OESOPHAGITIS [None]
  - PLATELET COUNT INCREASED [None]
  - POLYP [None]
  - RED BLOOD CELL COUNT DECREASED [None]
  - RESTLESS LEGS SYNDROME [None]
